FAERS Safety Report 21237727 (Version 6)
Quarter: 2023Q1

REPORT INFORMATION
  Report Type: Report from Study
  Country: US (occurrence: US)
  Receive Date: 20220822
  Receipt Date: 20230105
  Transmission Date: 20230417
  Serious: Yes (Other)
  Sender: FDA-Public Use
  Company Number: US-UCBSA-2022048799

PATIENT
  Sex: Female

DRUGS (2)
  1. CERTOLIZUMAB PEGOL [Suspect]
     Active Substance: CERTOLIZUMAB PEGOL
     Indication: Ankylosing spondylitis
     Dosage: 400 MILLIGRAM, EV 2 WEEKS(QOW)
     Route: 058
     Dates: start: 20220521, end: 2022
  2. CERTOLIZUMAB PEGOL [Suspect]
     Active Substance: CERTOLIZUMAB PEGOL
     Dosage: 200 MILLIGRAM, EV 2 WEEKS(QOW)
     Dates: start: 2022, end: 2022

REACTIONS (11)
  - Ankylosing spondylitis [Unknown]
  - COVID-19 [Recovering/Resolving]
  - Burning sensation [Recovered/Resolved]
  - Bone pain [Not Recovered/Not Resolved]
  - Hot flush [Not Recovered/Not Resolved]
  - Injection site pain [Recovering/Resolving]
  - Needle issue [Unknown]
  - Product availability issue [Unknown]
  - Therapy interrupted [Unknown]
  - Product distribution issue [Unknown]
  - Treatment delayed [Unknown]

NARRATIVE: CASE EVENT DATE: 20220101
